FAERS Safety Report 9986190 (Version 1)
Quarter: 2014Q1

REPORT INFORMATION
  Report Type: Spontaneous
  Country: NL (occurrence: NL)
  Receive Date: 20140307
  Receipt Date: 20140307
  Transmission Date: 20141002
  Serious: Yes (Death)
  Sender: FDA-Public Use
  Company Number: NL-IPSEN BIOPHARMACEUTICALS, INC.-2014-1134

PATIENT
  Age: 63 Year
  Sex: Male

DRUGS (3)
  1. SOMATULINE AUTOSOLUTION 120MG [Suspect]
     Indication: CARCINOID SYNDROME
     Dosage: 120 MG
     Route: 058
     Dates: start: 20111018, end: 20140205
  2. VITAMIN B [Concomitant]
     Indication: PRODUCT USED FOR UNKNOWN INDICATION
     Dosage: NOT REPORTED
     Route: 065
  3. UNKNOWN BLOOD THINNER [Concomitant]
     Indication: ANTICOAGULANT THERAPY
     Dosage: NOT REPORTED
     Route: 065

REACTIONS (1)
  - Cerebral haemorrhage [Fatal]
